FAERS Safety Report 13335902 (Version 2)
Quarter: 2017Q1

REPORT INFORMATION
  Report Type: Spontaneous
  Country: CN (occurrence: CN)
  Receive Date: 20170314
  Receipt Date: 20170324
  Transmission Date: 20170428
  Serious: Yes (Hospitalization)
  Sender: FDA-Public Use
  Company Number: CN-VALIDUS PHARMACEUTICALS LLC-CN-2017VAL000369

PATIENT

DRUGS (5)
  1. BENAZEPRIL HYDROCHLORIDE, HYDROCHLOROTHIAZIDE (BENAZEPRIL HYDROCHLORIDE, HYDROCHLOROTHIAZIDE) UNKNOWN [Suspect]
     Active Substance: BENAZEPRIL HYDROCHLORIDE\HYDROCHLOROTHIAZIDE
     Indication: PRODUCT USED FOR UNKNOWN INDICATION
     Dosage: 10 MG, BID
     Route: 048
  2. ATORVASTATIN CALCIUM. [Concomitant]
     Active Substance: ATORVASTATIN CALCIUM
     Indication: PRODUCT USED FOR UNKNOWN INDICATION
     Dosage: UNK
  3. ASPIRIN. [Concomitant]
     Active Substance: ASPIRIN
     Indication: PRODUCT USED FOR UNKNOWN INDICATION
     Dosage: UNK
  4. HEPARIN [Concomitant]
     Active Substance: HEPARIN SODIUM
     Indication: PRODUCT USED FOR UNKNOWN INDICATION
     Dosage: UNK
  5. AMLODIPINE W/VALSARTAN [Suspect]
     Active Substance: AMLODIPINE\VALSARTAN
     Indication: HYPERTENSION
     Dosage: 80 MG, QD
     Route: 048

REACTIONS (5)
  - Peripheral swelling [Unknown]
  - Face oedema [Recovering/Resolving]
  - IgA nephropathy [Unknown]
  - Nephrotic syndrome [Unknown]
  - Glomerulonephritis membranous [Unknown]

NARRATIVE: CASE EVENT DATE: 20161209
